FAERS Safety Report 26133200 (Version 1)
Quarter: 2025Q4

REPORT INFORMATION
  Report Type: Spontaneous
  Country: CA (occurrence: CA)
  Receive Date: 20251209
  Receipt Date: 20251209
  Transmission Date: 20260117
  Serious: Yes (Death, Life-Threatening)
  Sender: ACCORD
  Company Number: None

PATIENT
  Age: 65 Year
  Sex: Female
  Weight: 78 kg

DRUGS (35)
  1. FLUOROURACIL [Suspect]
     Active Substance: FLUOROURACIL
     Indication: Adenocarcinoma pancreas
  2. IRINOTECAN HYDROCHLORIDE [Suspect]
     Active Substance: IRINOTECAN HYDROCHLORIDE
     Indication: Adenocarcinoma pancreas
     Dosage: SOLUTION
     Route: 042
  3. LEUCOVORIN [Suspect]
     Active Substance: LEUCOVORIN\LEUCOVORIN CALCIUM
     Indication: Adenocarcinoma pancreas
  4. OXALIPLATIN [Suspect]
     Active Substance: OXALIPLATIN
     Indication: Adenocarcinoma pancreas
  5. ACETAMINOPHEN [Concomitant]
     Active Substance: ACETAMINOPHEN
  6. ADRENALIN [Concomitant]
     Active Substance: EPINEPHRINE
     Dosage: SOLUTION
     Route: 016
  7. ALBUTEROL [Concomitant]
     Active Substance: ALBUTEROL
  8. ATROPINE [Concomitant]
     Active Substance: ATROPINE
  9. BISOPROLOL [Concomitant]
     Active Substance: BISOPROLOL
  10. DEXAMETHASONE [Concomitant]
     Active Substance: DEXAMETHASONE
     Dosage: LIQUID
     Route: 014
  11. DEXILANT [Concomitant]
     Active Substance: DEXLANSOPRAZOLE
     Dosage: DELAYED RELEASE
  12. ENOXAPARIN [Concomitant]
     Active Substance: ENOXAPARIN
  13. FENTANYL [Concomitant]
     Active Substance: FENTANYL
  14. FILGRASTIM [Concomitant]
     Active Substance: FILGRASTIM
  15. HYDROCORTISONE [Concomitant]
     Active Substance: HYDROCORTISONE
  16. HYDROMORPHONE [Concomitant]
     Active Substance: HYDROMORPHONE
  17. IPRATROPIUM [Concomitant]
     Active Substance: IPRATROPIUM
  18. LOPERAMIDE [Concomitant]
     Active Substance: LOPERAMIDE
  19. LORAZEPAM [Concomitant]
     Active Substance: LORAZEPAM
  20. MENTHOL [Concomitant]
     Active Substance: MENTHOL
  21. MEROPENEM [Concomitant]
     Active Substance: MEROPENEM
     Dosage: POWDER FOR SOLUTION
     Route: 042
  22. METOCLOPRAMIDE [Concomitant]
     Active Substance: METOCLOPRAMIDE
  23. MIDAZOLAM [Concomitant]
     Active Substance: MIDAZOLAM
  24. NOREPINEPHRINE [Concomitant]
     Active Substance: NOREPINEPHRINE
     Dosage: LIQUID
     Route: 042
  25. OLANZAPINE [Concomitant]
     Active Substance: OLANZAPINE
  26. ONDANSETRON [Concomitant]
     Active Substance: ONDANSETRON
  27. PIPERACILLIN SODIUM\TAZOBACTAM SODIUM [Concomitant]
     Active Substance: PIPERACILLIN SODIUM\TAZOBACTAM SODIUM
  28. POLYETHYLENE GLYCOL [Concomitant]
     Active Substance: POLYETHYLENE GLYCOL
  29. PROCHLORPERAZINE [Concomitant]
     Active Substance: PROCHLORPERAZINE
  30. ROCURONIUM [Concomitant]
     Active Substance: ROCURONIUM BROMIDE
  31. ALBUTEROL [Concomitant]
     Active Substance: ALBUTEROL
     Dosage: LIQUID
     Route: 042
  32. TIMOLOL [Concomitant]
     Active Substance: TIMOLOL
  33. VANCOMYCIN [Concomitant]
     Active Substance: VANCOMYCIN
  34. VASOPRESSIN [Concomitant]
     Active Substance: VASOPRESSIN
  35. VITAMIN B1 [Concomitant]
     Active Substance: THIAMINE HYDROCHLORIDE

REACTIONS (1)
  - Febrile neutropenia [Fatal]
